FAERS Safety Report 6119887-X (Version None)
Quarter: 2009Q1

REPORT INFORMATION
  Report Type: 
  Country: None (occurrence: None)
  Receive Date: 20090316
  Receipt Date: 20090311
  Transmission Date: 20090719
  Serious: Yes (Other)
  Sender: FDA-Public Use
  Company Number: JP-BRISTOL-MYERS SQUIBB COMPANY-14541742

PATIENT
  Age: 14 Year
  Sex: Female

DRUGS (5)
  1. BRIPLATIN [Suspect]
     Indication: BONE SARCOMA
     Route: 041
  2. ENDOXAN [Suspect]
     Indication: BONE SARCOMA
     Route: 065
  3. ADRIAMYCIN RDF [Suspect]
     Indication: BONE SARCOMA
     Route: 042
  4. METHOTREXATE [Suspect]
     Indication: BONE SARCOMA
     Route: 065
  5. PEPLEO [Suspect]
     Indication: BONE SARCOMA
     Route: 042

REACTIONS (1)
  - RHABDOMYOSARCOMA [None]
